FAERS Safety Report 4717221-0 (Version None)
Quarter: 2005Q3

REPORT INFORMATION
  Report Type: 
  Country: None (occurrence: None)
  Receive Date: 20050715
  Receipt Date: 20050706
  Transmission Date: 20060218
  Serious: Yes (Hospitalization)
  Sender: FDA-Public Use
  Company Number: 2005-07-0121

PATIENT
  Sex: Female

DRUGS (1)
  1. ELOSALIC (MOMETASONE FUROATE/SALICYLIC ACID) OINTMENT ^LIKE ELOCON OIN [Suspect]
     Dosage: TOP-DERM
     Route: 061

REACTIONS (2)
  - DRUG INEFFECTIVE [None]
  - PSORIASIS [None]
